FAERS Safety Report 16944472 (Version 1)
Quarter: 2019Q4

REPORT INFORMATION
  Report Type: Spontaneous
  Country: US (occurrence: US)
  Receive Date: 20191022
  Receipt Date: 20191022
  Transmission Date: 20200122
  Serious: No
  Sender: FDA-Public Use
  Company Number: US-MYLANLABS-2019M1093485

PATIENT
  Sex: Female

DRUGS (1)
  1. LAMOTRIGINE MYLAN [Suspect]
     Active Substance: LAMOTRIGINE
     Indication: EPILEPSY
     Dosage: UNK
     Route: 065
     Dates: start: 2008

REACTIONS (7)
  - Skin odour abnormal [Unknown]
  - Sinus disorder [Recovering/Resolving]
  - Vision blurred [Unknown]
  - Feeling abnormal [Unknown]
  - Hyperhidrosis [Unknown]
  - Anxiety [Unknown]
  - Panic attack [Unknown]
